FAERS Safety Report 5925913-0 (Version None)
Quarter: 2008Q4

REPORT INFORMATION
  Report Type: 
  Country: None (occurrence: None)
  Receive Date: 20081021
  Receipt Date: 20081009
  Transmission Date: 20090506
  Serious: Yes (Other)
  Sender: FDA-Public Use
  Company Number: US-PFIZER INC-2008086931

PATIENT
  Sex: Male

DRUGS (5)
  1. CHANTIX [Suspect]
     Indication: SMOKING CESSATION THERAPY
     Dates: start: 20080101, end: 20081008
  2. SIMVASTATIN [Concomitant]
     Indication: BLOOD CHOLESTEROL INCREASED
  3. HYZAAR [Concomitant]
     Indication: HYPERTENSION
  4. PREVACID [Concomitant]
     Indication: GASTROOESOPHAGEAL REFLUX DISEASE
  5. CYMBALTA [Concomitant]

REACTIONS (8)
  - ABNORMAL BEHAVIOUR [None]
  - DISTURBANCE IN ATTENTION [None]
  - ERYTHEMA [None]
  - FEELING ABNORMAL [None]
  - ILL-DEFINED DISORDER [None]
  - MUTISM [None]
  - NERVOUSNESS [None]
  - RASH [None]
